FAERS Safety Report 4566475-2 (Version None)
Quarter: 2005Q1

REPORT INFORMATION
  Report Type: 
  Country: None (occurrence: None)
  Receive Date: 20050127
  Receipt Date: 20050127
  Transmission Date: 20050727
  Serious: Yes (Hospitalization)
  Sender: FDA-Public Use
  Company Number: None

PATIENT
  Sex: Male
  Weight: 77.1115 kg

DRUGS (1)
  1. BACTRIM DS [Suspect]
     Indication: FURUNCLE
     Dosage: 800 MG PO BID
     Route: 048
     Dates: start: 20041213

REACTIONS (1)
  - MEDICATION ERROR [None]
